FAERS Safety Report 7579477-9 (Version None)
Quarter: 2011Q2

REPORT INFORMATION
  Report Type: 
  Country: None (occurrence: None)
  Receive Date: 20110629
  Receipt Date: 20100709
  Transmission Date: 20111010
  Serious: Yes (Other)
  Sender: FDA-Public Use
  Company Number: US-BAYER-201027289NA

PATIENT
  Age: 75 Year
  Sex: Male
  Weight: 73 kg

DRUGS (14)
  1. TRAZODONE HCL [Concomitant]
     Dosage: 50 MG, UNK
     Route: 048
     Dates: start: 20060729
  2. RED BLOOD CELLS [Concomitant]
     Dosage: UNK
     Route: 042
     Dates: start: 20051211
  3. LORAZEPAM [Concomitant]
     Dosage: 0.5 MG, UNK
     Route: 048
  4. NOVOLOG [Concomitant]
     Dosage: LONG TERM
     Route: 058
  5. NORVASC [Concomitant]
     Dosage: 10 MG, LONG TERM
     Route: 048
  6. LANTUS [Concomitant]
     Dosage: LONG TERM
     Route: 058
  7. PLAVIX [Concomitant]
     Dosage: 75 MG, UNK
     Route: 048
  8. LISINOPRIL [Concomitant]
     Dosage: 20 MG, UNK
     Route: 048
     Dates: start: 20060213
  9. LABETALOL HCL [Concomitant]
     Dosage: 200 MG, UNK
     Route: 048
     Dates: start: 20070928
  10. LIPITOR [Concomitant]
     Dosage: 40 MG, UNK
     Route: 048
  11. VIOKASE [PANCREATIN] [Concomitant]
     Dosage: UNK
     Dates: start: 20060421
  12. TRASYLOL [Suspect]
     Indication: CORONARY ARTERY BYPASS
     Dosage: 1000000 U
     Route: 042
     Dates: start: 20051211
  13. FLUOXETINE HCL [Concomitant]
     Dosage: 20 MG, UNK
     Route: 048
  14. METOPROLOL TARTRATE [Concomitant]
     Dosage: 100 MG, ORAL
     Route: 048

REACTIONS (9)
  - RENAL FAILURE [None]
  - FEAR [None]
  - RENAL IMPAIRMENT [None]
  - RENAL INJURY [None]
  - UNEVALUABLE EVENT [None]
  - STRESS [None]
  - PAIN [None]
  - INJURY [None]
  - ANXIETY [None]
